FAERS Safety Report 24628059 (Version 1)
Quarter: 2024Q4

REPORT INFORMATION
  Report Type: Report from Study
  Country: ZA (occurrence: ZA)
  Receive Date: 20241117
  Receipt Date: 20241117
  Transmission Date: 20250115
  Serious: Yes (Other)
  Sender: ALEXION PHARMACEUTICALS
  Company Number: ZA-AstraZeneca-CH-00727553A

PATIENT
  Age: 69 Year

DRUGS (16)
  1. BUDESONIDE\FORMOTEROL [Suspect]
     Active Substance: BUDESONIDE\FORMOTEROL
     Dosage: 60 DOSE 160/4.5 MCG
  2. BUDESONIDE\FORMOTEROL [Suspect]
     Active Substance: BUDESONIDE\FORMOTEROL
     Dosage: 60 DOSE 160/4.5 MCG
  3. BUDESONIDE\FORMOTEROL [Suspect]
     Active Substance: BUDESONIDE\FORMOTEROL
     Dosage: 60 DOSE 160/4.5 MCG
  4. BUDESONIDE\FORMOTEROL [Suspect]
     Active Substance: BUDESONIDE\FORMOTEROL
     Dosage: 60 DOSE 160/4.5 MCG
  5. LOSARTAN POTASSIUM [Concomitant]
     Active Substance: LOSARTAN POTASSIUM
  6. LOSARTAN POTASSIUM [Concomitant]
     Active Substance: LOSARTAN POTASSIUM
     Route: 065
  7. ZOLPIDEM TARTRATE [Concomitant]
     Active Substance: ZOLPIDEM TARTRATE
  8. ZOLPIDEM TARTRATE [Concomitant]
     Active Substance: ZOLPIDEM TARTRATE
     Route: 065
  9. LENADOL [Concomitant]
  10. LENADOL [Concomitant]
     Route: 065
  11. BUDESONIDE [Concomitant]
     Active Substance: BUDESONIDE
  12. BUDESONIDE [Concomitant]
     Active Substance: BUDESONIDE
     Route: 065
  13. CODEINE [Concomitant]
     Active Substance: CODEINE
  14. CODEINE [Concomitant]
     Active Substance: CODEINE
     Route: 065
  15. DORMONOCT [Concomitant]
     Active Substance: LOPRAZOLAM
  16. DORMONOCT [Concomitant]
     Active Substance: LOPRAZOLAM
     Route: 065

REACTIONS (1)
  - Pancreatic carcinoma [Unknown]
